FAERS Safety Report 21584457 (Version 6)
Quarter: 2023Q4

REPORT INFORMATION
  Report Type: Report from Study
  Country: US (occurrence: US)
  Receive Date: 20221111
  Receipt Date: 20231212
  Transmission Date: 20240110
  Serious: Yes (Other)
  Sender: FDA-Public Use
  Company Number: US-ABBVIE-4195761

PATIENT
  Sex: Male
  Weight: 83 kg

DRUGS (30)
  1. HUMIRA [Suspect]
     Active Substance: ADALIMUMAB
     Indication: Psoriasis
     Dosage: FORM STRENGTH 40MG
     Route: 058
     Dates: start: 20190314
  2. HUMIRA [Suspect]
     Active Substance: ADALIMUMAB
     Indication: Psoriatic arthropathy
     Dosage: FORM STRENGTH 40MG
     Route: 058
  3. HUMIRA [Suspect]
     Active Substance: ADALIMUMAB
     Route: 058
  4. HUMIRA [Suspect]
     Active Substance: ADALIMUMAB
     Route: 058
  5. HUMIRA [Suspect]
     Active Substance: ADALIMUMAB
     Route: 058
  6. HERBALS\TURMERIC [Concomitant]
     Active Substance: HERBALS\TURMERIC
     Indication: Product used for unknown indication
     Dosage: TUMERIC WITH 95% CURCUMINOIDS AND BLACK PEPPER EXTRACT: ONE 553 MG TABLET BID
  7. VITAMIN B6 [Concomitant]
     Active Substance: PYRIDOXINE HYDROCHLORIDE
     Indication: Product used for unknown indication
     Dosage: 100 MG PYRIDOXIAL-5-PHOSPHATE: ONE 100 MG QD
  8. R-ALPHA LIPOIC ACID [Concomitant]
     Indication: Product used for unknown indication
     Dosage: ONE 300 MG CAPSULE QD
  9. LEVOMEFOLIC ACID [Concomitant]
     Active Substance: LEVOMEFOLIC ACID
     Indication: Product used for unknown indication
     Dosage: ONE 400 MCG QD
  10. L-arginine + L-citrulline [Concomitant]
     Indication: Product used for unknown indication
     Dosage: 500 MG/250 MG, TWO CAPSULES QD
  11. COENZYME Q10 [Concomitant]
     Active Substance: DIETARY SUPPLEMENT\UBIDECARENONE
     Indication: Product used for unknown indication
  12. VITAMIN B12 [Concomitant]
     Active Substance: CYANOCOBALAMIN
     Indication: Product used for unknown indication
     Dosage: ONE 1000 MCG METHYLCOBALAMIN CAPSULE QD
  13. FISH OIL\OMEGA-3 FATTY ACIDS [Concomitant]
     Active Substance: FISH OIL\OMEGA-3 FATTY ACIDS
     Indication: Product used for unknown indication
     Dosage: TWO 2000 MG CAPSULES QD
  14. BENFOTIAMINE [Concomitant]
     Active Substance: BENFOTIAMINE
     Indication: Product used for unknown indication
  15. NEXIUM [Concomitant]
     Active Substance: ESOMEPRAZOLE MAGNESIUM
     Indication: Gastrooesophageal reflux disease
     Dosage: 40 MG CAPSULE, ONE CAPSULE QD FOR GERD
  16. VYTORIN [Concomitant]
     Active Substance: EZETIMIBE\SIMVASTATIN
     Indication: Blood cholesterol increased
     Dosage: 10/40 MG, ONE QD FOR HIGH CHOLESTEROL
  17. SYNTHROID [Concomitant]
     Active Substance: LEVOTHYROXINE SODIUM
     Indication: Hypothyroidism
     Dosage: 125 MCG, ONE TABLET QD FOR 5 DAYS AND 1/2 TABLET FOR 2 DAYS FOR HYPOTHYROIDISM
  18. AMLODIPINE BESYLATE\BENAZEPRIL HYDROCHLORIDE [Concomitant]
     Active Substance: AMLODIPINE BESYLATE\BENAZEPRIL HYDROCHLORIDE
     Indication: Hypertension
     Dosage: 10/20, ONE CAPSULE QD AT NIGHT FOR HIGH BLOOD PRESSURE
  19. PREVNAR 20 [Concomitant]
     Active Substance: PNEUMOCOCCAL 20-VALENT CONJUGATE VACCINE
     Indication: Immunisation
     Dates: start: 20220404
  20. SHINGRIX [Concomitant]
     Active Substance: RECOMBINANT VARICELLA ZOSTER VIRUS (VZV) GLYCOPROTEIN E
     Indication: Hepatitis B immunisation
     Dosage: TIME INTERVAL: TOTAL
     Dates: start: 20220120, end: 20220120
  21. SHINGRIX [Concomitant]
     Active Substance: RECOMBINANT VARICELLA ZOSTER VIRUS (VZV) GLYCOPROTEIN E
     Indication: Hepatitis B immunisation
     Dosage: TIME INTERVAL: TOTAL
     Dates: start: 20220321, end: 20220321
  22. SHINGRIX [Concomitant]
     Active Substance: RECOMBINANT VARICELLA ZOSTER VIRUS (VZV) GLYCOPROTEIN E
     Indication: Hepatitis B immunisation
     Dosage: TIME INTERVAL: TOTAL
     Dates: start: 20220719, end: 20220719
  23. Fluzone High Dose Quadrivalent [Concomitant]
     Indication: Immunisation
     Dosage: TIME INTERVAL: TOTAL
     Dates: start: 20230913
  24. PFIZER-BIONTECH COVID-19 VACCINE [Concomitant]
     Active Substance: TOZINAMERAN
     Indication: COVID-19 immunisation
     Dosage: TIME INTERVAL: TOTAL
     Route: 030
     Dates: start: 20210131, end: 20210131
  25. PFIZER-BIONTECH COVID-19 VACCINE [Concomitant]
     Active Substance: TOZINAMERAN
     Indication: COVID-19 immunisation
     Dosage: TIME INTERVAL: TOTAL
     Route: 030
     Dates: start: 20210221, end: 20210221
  26. PFIZER-BIONTECH COVID-19 VACCINE [Concomitant]
     Active Substance: TOZINAMERAN
     Indication: COVID-19 immunisation
     Dosage: TIME INTERVAL: TOTAL: 1 ST BOOSTER
     Route: 030
     Dates: start: 20210914, end: 20210914
  27. PFIZER-BIONTECH COVID-19 VACCINE [Concomitant]
     Active Substance: TOZINAMERAN
     Indication: COVID-19 immunisation
     Dosage: TIME INTERVAL: TOTAL: 2ND BOOSTER
     Route: 030
     Dates: start: 20220419, end: 20220419
  28. PFIZER-BIONTECH COVID-19 VACCINE [Concomitant]
     Active Substance: TOZINAMERAN
     Indication: COVID-19 immunisation
     Dosage: TIME INTERVAL: TOTAL: 3RD BOOSTER
     Route: 030
     Dates: start: 20220925, end: 20220925
  29. PFIZER-BIONTECH COVID-19 VACCINE [Concomitant]
     Active Substance: TOZINAMERAN
     Indication: COVID-19 immunisation
     Dosage: TIME INTERVAL: TOTAL: 4TH BOOSTER
     Route: 030
     Dates: start: 20230623, end: 20230623
  30. PFIZER-BIONTECH COVID-19 VACCINE [Concomitant]
     Active Substance: TOZINAMERAN
     Indication: COVID-19 immunisation
     Dosage: TIME INTERVAL: TOTAL: 5TH BOOSTER
     Route: 030
     Dates: start: 20230929, end: 20230929

REACTIONS (10)
  - Lupus-like syndrome [Unknown]
  - Axonal neuropathy [Not Recovered/Not Resolved]
  - Oral candidiasis [Recovered/Resolved]
  - Pulpitis dental [Recovering/Resolving]
  - Headache [Not Recovered/Not Resolved]
  - Systemic lupus erythematosus [Unknown]
  - Renal cyst [Unknown]
  - Spider vein [Unknown]
  - Salivary gland calculus [Unknown]
  - Varicose vein [Unknown]

NARRATIVE: CASE EVENT DATE: 20190101
